FAERS Safety Report 7549089-1 (Version None)
Quarter: 2011Q2

REPORT INFORMATION
  Report Type: 
  Country: None (occurrence: None)
  Receive Date: 20110615
  Receipt Date: 20110531
  Transmission Date: 20111010
  Serious: Yes (Other)
  Sender: FDA-Public Use
  Company Number: IT-JNJFOC-20110601252

PATIENT
  Age: 4 Year
  Sex: Female

DRUGS (5)
  1. CHLOR-TRIMETON [Concomitant]
     Indication: PREMEDICATION
     Route: 042
  2. SOLU-MEDROL [Concomitant]
     Indication: PREMEDICATION
     Route: 042
  3. REMICADE [Suspect]
     Indication: UVEITIS
     Route: 042
     Dates: start: 20110526, end: 20110526
  4. PREDNISONE [Concomitant]
     Route: 048
  5. SANDIMMUNE [Concomitant]
     Route: 048

REACTIONS (7)
  - HEART RATE INCREASED [None]
  - ABDOMINAL PAIN [None]
  - OXYGEN SATURATION DECREASED [None]
  - RETCHING [None]
  - BODY TEMPERATURE DECREASED [None]
  - ERYTHEMA [None]
  - INFUSION RELATED REACTION [None]
